FAERS Safety Report 23310253 (Version 1)
Quarter: 2023Q4

REPORT INFORMATION
  Report Type: Spontaneous
  Country: FR (occurrence: FR)
  Receive Date: 20231218
  Receipt Date: 20231218
  Transmission Date: 20240110
  Serious: Yes (Hospitalization)
  Sender: FDA-Public Use
  Company Number: None

PATIENT
  Age: 82 Year
  Sex: Male
  Weight: 81.6 kg

DRUGS (12)
  1. OFLOXACIN [Interacting]
     Active Substance: OFLOXACIN
     Indication: Urinary tract infection bacterial
     Dosage: 200 MILLIGRAM, QD
     Route: 048
     Dates: start: 20231112, end: 20231116
  2. CITALOPRAM [Interacting]
     Active Substance: CITALOPRAM HYDROBROMIDE
     Indication: Mixed anxiety and depressive disorder
     Dosage: 40 MILLIGRAM, QD
     Route: 048
     Dates: start: 20231004
  3. TRAMADOL HYDROCHLORIDE [Interacting]
     Active Substance: TRAMADOL HYDROCHLORIDE
     Indication: Analgesic therapy
     Dosage: 3 DROPS, Q6H
     Route: 065
     Dates: start: 20231109, end: 20231110
  4. TRAMADOL HYDROCHLORIDE [Interacting]
     Active Substance: TRAMADOL HYDROCHLORIDE
     Dosage: 15 DROPS, Q6H
     Route: 065
     Dates: start: 20231110, end: 20231115
  5. POLYETHYLENE GLYCOL 4000 [Concomitant]
     Active Substance: POLYETHYLENE GLYCOL 4000
     Indication: Constipation
     Dosage: 1 ARBITRARY UNITS, QH
     Route: 048
  6. ACEBUTOLOL HYDROCHLORIDE [Concomitant]
     Active Substance: ACEBUTOLOL HYDROCHLORIDE
     Dosage: 100 MILLIGRAM, QD
     Route: 048
     Dates: end: 20230911
  7. ACEBUTOLOL HYDROCHLORIDE [Concomitant]
     Active Substance: ACEBUTOLOL HYDROCHLORIDE
     Dosage: 100 MILLIGRAM, QD
     Route: 048
     Dates: start: 20230911
  8. ATORVASTATIN [Concomitant]
     Active Substance: ATORVASTATIN
     Indication: Hypercholesterolaemia
     Dosage: 40 MILLIGRAM, QD
     Route: 048
  9. LANSOPRAZOLE [Concomitant]
     Active Substance: LANSOPRAZOLE
     Indication: Gastrooesophageal reflux disease
     Dosage: 30 MILLIGRAM, QD
     Route: 048
  10. CEFTRIAXONE SODIUM [Concomitant]
     Active Substance: CEFTRIAXONE SODIUM
     Indication: Urinary tract infection
     Dosage: 1 GRAM, QD
     Route: 042
     Dates: start: 20231116
  11. ACETAMINOPHEN [Concomitant]
     Active Substance: ACETAMINOPHEN
     Indication: Analgesic therapy
     Dosage: 1 GRAM, Q6H
     Route: 048
  12. KARDEGIC [Concomitant]
     Active Substance: ASPIRIN DL-LYSINE
     Indication: Ischaemic stroke
     Dosage: 160 MILLIGRAM, QD
     Route: 048
     Dates: start: 20230516

REACTIONS (3)
  - Confusional state [Recovered/Resolved]
  - Hallucination, visual [Recovered/Resolved]
  - Drug interaction [Unknown]

NARRATIVE: CASE EVENT DATE: 20231115
